FAERS Safety Report 9184330 (Version 1)
Quarter: 2012Q4

REPORT INFORMATION
  Report Type: 
  Country: US (occurrence: US)
  Receive Date: 20121031
  Receipt Date: 20121031
  Transmission Date: 20130627
  Serious: Yes (Other)
  Sender: FDA-Public Use
  Company Number: US-ELI_LILLY_AND_COMPANY-US201210006942

PATIENT
  Sex: Female

DRUGS (6)
  1. HUMALOG LISPRO [Suspect]
     Indication: TYPE 1 DIABETES MELLITUS
     Dosage: UNK, prn
     Dates: start: 2010
  2. HUMALOG LISPRO [Suspect]
     Dosage: UNK, prn
  3. HUMALOG LISPRO [Suspect]
     Dosage: UNK, prn
  4. HUMALOG LISPRO [Suspect]
     Dosage: UNK, prn
  5. LANTUS [Concomitant]
  6. ENBREL [Concomitant]
     Indication: PSORIATIC ARTHROPATHY
     Dosage: UNK
     Dates: start: 2010

REACTIONS (2)
  - Immune system disorder [Unknown]
  - Visual impairment [Not Recovered/Not Resolved]
